FAERS Safety Report 15632059 (Version 2)
Quarter: 2018Q4

REPORT INFORMATION
  Report Type: Report from Study
  Country: DE (occurrence: DE)
  Receive Date: 20181119
  Receipt Date: 20181123
  Transmission Date: 20190205
  Serious: Yes (Hospitalization, Other)
  Sender: FDA-Public Use
  Company Number: DE-JNJFOC-20181122127

PATIENT
  Age: 5 Year
  Sex: Female
  Weight: 54 kg

DRUGS (14)
  1. METHOTREXATE. [Concomitant]
     Active Substance: METHOTREXATE
     Indication: POLYARTHRITIS
     Route: 048
     Dates: start: 20060912, end: 20070429
  2. URBASON [Concomitant]
     Active Substance: METHYLPREDNISOLONE
     Indication: JUVENILE IDIOPATHIC ARTHRITIS
     Route: 065
     Dates: start: 20060912, end: 20070429
  3. DECORTIN H [Concomitant]
     Active Substance: PREDNISOLONE
     Indication: UVEITIS
     Route: 065
     Dates: start: 20070209, end: 20070510
  4. REMICADE [Suspect]
     Active Substance: INFLIXIMAB
     Indication: UVEITIS
     Route: 042
     Dates: start: 20061207, end: 20070425
  5. NAPROXEN. [Concomitant]
     Active Substance: NAPROXEN
     Indication: JUVENILE IDIOPATHIC ARTHRITIS
     Route: 065
     Dates: start: 20061101, end: 20070209
  6. NAPROXEN. [Concomitant]
     Active Substance: NAPROXEN
     Indication: UVEITIS
     Route: 065
     Dates: start: 20061101, end: 20070209
  7. FENISTIL [Concomitant]
     Active Substance: DIMETHINDENE
     Indication: PREMEDICATION
     Route: 048
     Dates: start: 20070425
  8. METHOTREXATE. [Concomitant]
     Active Substance: METHOTREXATE
     Indication: POLYARTHRITIS
     Route: 048
     Dates: start: 20060912, end: 20070429
  9. PREDNISONE. [Concomitant]
     Active Substance: PREDNISONE
     Indication: PREMEDICATION
     Route: 048
     Dates: start: 20070425
  10. REMICADE [Suspect]
     Active Substance: INFLIXIMAB
     Indication: POLYARTHRITIS
     Route: 042
     Dates: start: 20061207, end: 20070425
  11. METHOTREXATE. [Concomitant]
     Active Substance: METHOTREXATE
     Indication: UVEITIS
     Route: 048
     Dates: start: 20060912, end: 20070429
  12. URBASON [Concomitant]
     Active Substance: METHYLPREDNISOLONE
     Indication: UVEITIS
     Route: 065
     Dates: start: 20060912, end: 20070429
  13. DECORTIN H [Concomitant]
     Active Substance: PREDNISOLONE
     Indication: JUVENILE IDIOPATHIC ARTHRITIS
     Route: 065
     Dates: start: 20070209, end: 20070510
  14. REMICADE [Suspect]
     Active Substance: INFLIXIMAB
     Indication: JUVENILE IDIOPATHIC ARTHRITIS
     Route: 042
     Dates: start: 20061207, end: 20070425

REACTIONS (5)
  - Product use in unapproved indication [Unknown]
  - Off label use [Unknown]
  - Lymphoproliferative disorder [Recovered/Resolved]
  - Infusion related reaction [Recovered/Resolved]
  - Anaphylactic reaction [Recovered/Resolved]

NARRATIVE: CASE EVENT DATE: 20061207
